FAERS Safety Report 5491709-X (Version None)
Quarter: 2007Q4

REPORT INFORMATION
  Report Type: 
  Country: None (occurrence: None)
  Receive Date: 20071018
  Receipt Date: 20071018
  Transmission Date: 20080405
  Serious: Yes (Hospitalization)
  Sender: FDA-Public Use
  Company Number: None

PATIENT
  Age: 34 Year
  Sex: Female
  Weight: 75 kg

DRUGS (12)
  1. MORPHINE [Suspect]
     Indication: PAIN
     Dosage: MSSR 30 MG PO BID; MSIR 15 MG PO Q6?
     Route: 048
     Dates: start: 20070824, end: 20070902
  2. METOPROLOL [Concomitant]
  3. ENALAPRIL MALEATE [Concomitant]
  4. ASPIRIN [Concomitant]
  5. VIT C [Concomitant]
  6. CEFAZOLIN [Concomitant]
  7. KLONOPIN [Concomitant]
  8. TEMAZEPAM [Concomitant]
  9. PREDNISONE [Concomitant]
  10. CELLCEPT [Concomitant]
  11. METOCLOPRAMIDE [Concomitant]
  12. RITALIN [Concomitant]

REACTIONS (3)
  - CONFUSIONAL STATE [None]
  - MENTAL STATUS CHANGES [None]
  - WRONG DRUG ADMINISTERED [None]
